FAERS Safety Report 4269444-5 (Version None)
Quarter: 2004Q1

REPORT INFORMATION
  Report Type: 
  Country: None (occurrence: None)
  Receive Date: 20040112
  Receipt Date: 20040112
  Transmission Date: 20041129
  Serious: Yes (Other)
  Sender: FDA-Public Use
  Company Number: None

PATIENT
  Age: 52 Year
  Sex: Male

DRUGS (4)
  1. STRATTERA [Suspect]
     Indication: BIPOLAR DISORDER
     Dosage: ORAL
     Route: 048
  2. DEPAKOTE [Concomitant]
  3. LITHIUM CARBONATE [Concomitant]
  4. CONCERTA [Concomitant]

REACTIONS (1)
  - HISTAMINE LEVEL DECREASED [None]
